FAERS Safety Report 22358407 (Version 1)
Quarter: 2023Q2

REPORT INFORMATION
  Report Type: Spontaneous
  Country: US (occurrence: US)
  Receive Date: 20230524
  Receipt Date: 20230524
  Transmission Date: 20230722
  Serious: Yes (Death, Hospitalization)
  Sender: FDA-Public Use
  Company Number: US-BRISTOL-MYERS SQUIBB COMPANY-2023-069844

PATIENT
  Sex: Female

DRUGS (1)
  1. OPDUALAG [Suspect]
     Active Substance: NIVOLUMAB\RELATLIMAB-RMBW
     Indication: Metastatic malignant melanoma
     Dosage: 1 DOSE OF 1L OF TREATMENT

REACTIONS (4)
  - Myocarditis [Fatal]
  - Myositis [Fatal]
  - Myasthenia gravis [Fatal]
  - Infection [Unknown]
